FAERS Safety Report 4570128-4 (Version None)
Quarter: 2005Q1

REPORT INFORMATION
  Report Type: 
  Country: None (occurrence: None)
  Receive Date: 20050131
  Receipt Date: 20050114
  Transmission Date: 20050727
  Serious: Yes (Other)
  Sender: FDA-Public Use
  Company Number: 16202

PATIENT
  Age: 46 Year
  Sex: Female
  Weight: 52.1637 kg

DRUGS (2)
  1. ADRIAMYCIN PFS [Suspect]
     Indication: BREAST CANCER
     Dosage: 94 MG IV Q3WKS X 3
     Dates: start: 20041001
  2. CYTOXAN [Concomitant]

REACTIONS (6)
  - ALOPECIA [None]
  - CHEST PAIN [None]
  - JOINT DISLOCATION [None]
  - NAUSEA [None]
  - PAIN [None]
  - VISUAL ACUITY REDUCED [None]
